FAERS Safety Report 22045626 (Version 11)
Quarter: 2023Q4

REPORT INFORMATION
  Report Type: Spontaneous
  Country: US (occurrence: US)
  Receive Date: 20230228
  Receipt Date: 20231222
  Transmission Date: 20240110
  Serious: Yes (Other)
  Sender: FDA-Public Use
  Company Number: US-PFIZER INC-PV202300033081

PATIENT
  Age: 63 Year
  Sex: Female
  Weight: 62.585 kg

DRUGS (6)
  1. PREMARIN [Suspect]
     Active Substance: ESTROGENS, CONJUGATED
     Indication: Hormone replacement therapy
     Dosage: T (TABLET) PO (PER ORAL) Q (EVERY) AM AND TAKE T (TABLET) PO (PER ORAL) AFTERNOON
     Route: 048
  2. PREMARIN [Suspect]
     Active Substance: ESTROGENS, CONJUGATED
     Dosage: TAKE 1 TABLET (S) 3 TIMES A DAY/PREMARIN 1.25MG 1PO AM AND 2PO QHS
     Route: 048
  3. PREMARIN [Suspect]
     Active Substance: ESTROGENS, CONJUGATED
     Dosage: 1 PO Q AM AND 1 PO AFTERNOON
     Route: 048
  4. ESTRATEST [Concomitant]
     Active Substance: ESTROGENS, ESTERIFIED\METHYLTESTOSTERONE
     Indication: Hormone replacement therapy
     Dosage: NIGHTLY
  5. PROGESTERONE [Concomitant]
     Active Substance: PROGESTERONE
     Indication: Hormone replacement therapy
     Dosage: UNK
  6. TESTOSTERONE [Concomitant]
     Active Substance: TESTOSTERONE
     Indication: Hormone replacement therapy
     Dosage: UNK

REACTIONS (11)
  - Bipolar disorder [Unknown]
  - Hyperhidrosis [Unknown]
  - Skin odour abnormal [Unknown]
  - Night sweats [Unknown]
  - Weight decreased [Unknown]
  - Illness [Unknown]
  - Dyslexia [Unknown]
  - Asthenia [Unknown]
  - Cyst [Unknown]
  - Blood pressure increased [Unknown]
  - Off label use [Unknown]
